FAERS Safety Report 6636263-1 (Version None)
Quarter: 2010Q1

REPORT INFORMATION
  Report Type: 
  Country: None (occurrence: None)
  Receive Date: 20100226
  Receipt Date: 20100205
  Transmission Date: 20100710
  Serious: Yes (Other)
  Sender: FDA-Public Use
  Company Number: 2010-00232

PATIENT
  Age: 91 Year
  Sex: Female
  Weight: 63.5036 kg

DRUGS (5)
  1. ZICAM COLD REMEDY RAPIDMELTS WITH VITAMIN C [Suspect]
     Dosage: BID - 1 DAY
     Dates: start: 20100204, end: 20100205
  2. TOPROL-XL [Concomitant]
  3. COUMADIN [Concomitant]
  4. CALCIUM WITH VITAMIN D [Concomitant]
  5. MULTI-VITAMIN [Concomitant]

REACTIONS (1)
  - AGEUSIA [None]
